FAERS Safety Report 7207166-9 (Version None)
Quarter: 2011Q1

REPORT INFORMATION
  Report Type: 
  Country: None (occurrence: None)
  Receive Date: 20110103
  Receipt Date: 20101228
  Transmission Date: 20110831
  Serious: Yes (Hospitalization)
  Sender: FDA-Public Use
  Company Number: JP-ROCHE-735168

PATIENT
  Sex: Female
  Weight: 53.6 kg

DRUGS (2)
  1. PEGASYS [Suspect]
     Indication: HEPATITIS C
     Dosage: NOTE: DOSAGE IS UNCERTAIN
     Route: 058
     Dates: start: 20080625, end: 20100411
  2. COPEGUS [Suspect]
     Indication: HEPATITIS C
     Dosage: NOTE: DOSAGE IS UNCERTAIN
     Route: 048
     Dates: start: 20080625, end: 20100411

REACTIONS (2)
  - MUSCLE ABSCESS [None]
  - NEUTROPHIL COUNT DECREASED [None]
